FAERS Safety Report 13284798 (Version 1)
Quarter: 2017Q1

REPORT INFORMATION
  Report Type: Spontaneous
  Country: US (occurrence: US)
  Receive Date: 20170228
  Receipt Date: 20170228
  Transmission Date: 20170428
  Serious: Yes (Hospitalization)
  Sender: FDA-Public Use
  Company Number: None

PATIENT
  Age: 14 Year
  Sex: Male
  Weight: 65.5 kg

DRUGS (5)
  1. VINCRISTINE SULFATE. [Suspect]
     Active Substance: VINCRISTINE SULFATE
     Dates: end: 20170215
  2. DEXAMETHASONE. [Suspect]
     Active Substance: DEXAMETHASONE
     Dates: end: 20170222
  3. DOXORUBICIN HYDROCHLORIDE. [Suspect]
     Active Substance: DOXORUBICIN HYDROCHLORIDE
     Dates: end: 20170215
  4. METHOTREXATE. [Suspect]
     Active Substance: METHOTREXATE
     Dates: end: 20170201
  5. ONCASPAR [Suspect]
     Active Substance: PEGASPARGASE
     Dates: end: 20170203

REACTIONS (6)
  - Neutropenia [None]
  - Soft tissue infection [None]
  - Hypotension [None]
  - Mucosal inflammation [None]
  - Cellulitis [None]
  - Skin infection [None]

NARRATIVE: CASE EVENT DATE: 20170222
